FAERS Safety Report 6620424-1 (Version None)
Quarter: 2010Q1

REPORT INFORMATION
  Report Type: 
  Country: None (occurrence: None)
  Receive Date: 20100308
  Receipt Date: 20100308
  Transmission Date: 20100710
  Serious: Yes (Other)
  Sender: FDA-Public Use
  Company Number: None

PATIENT
  Sex: Female
  Weight: 58.0604 kg

DRUGS (1)
  1. MIRENA [Suspect]
     Indication: CONTRACEPTION
     Dates: start: 20090306, end: 20100122

REACTIONS (18)
  - ABDOMINAL DISCOMFORT [None]
  - ABDOMINAL DISTENSION [None]
  - ACNE [None]
  - ADNEXA UTERI PAIN [None]
  - ALOPECIA [None]
  - AMNESIA [None]
  - ANXIETY [None]
  - CHEST DISCOMFORT [None]
  - CHEST PAIN [None]
  - DEPRESSION [None]
  - DYSPNOEA [None]
  - FEELING ABNORMAL [None]
  - HEADACHE [None]
  - HYPOAESTHESIA [None]
  - MOOD ALTERED [None]
  - PAIN [None]
  - VISION BLURRED [None]
  - WEIGHT INCREASED [None]
